FAERS Safety Report 6753567-2 (Version None)
Quarter: 2010Q2

REPORT INFORMATION
  Report Type: 
  Country: None (occurrence: None)
  Receive Date: 20100528
  Receipt Date: 20100521
  Transmission Date: 20101027
  Serious: Yes (Death)
  Sender: FDA-Public Use
  Company Number: 2010JP002782

PATIENT
  Age: 78 Year
  Sex: Male
  Weight: 49 kg

DRUGS (5)
  1. PROGRAF [Suspect]
     Indication: RHEUMATOID ARTHRITIS
     Dosage: ORAL
     Route: 048
     Dates: start: 20081103, end: 20081201
  2. PREDNISOLONE [Suspect]
     Indication: RHEUMATOID ARTHRITIS
     Dosage: 5 MG,/D
     Dates: start: 20060401
  3. ACTEMRA [Suspect]
     Indication: RHEUMATOID ARTHRITIS
     Dosage: 400 MG, MONTLY IV DRIP
     Route: 041
     Dates: start: 20080801, end: 20080901
  4. CYCLOPHOSPHAMIDE [Suspect]
     Indication: RHEUMATOID ARTHRITIS
     Dosage: ORAL
     Route: 048
     Dates: start: 20081201, end: 20090101
  5. SOLU-MEDROL [Suspect]
     Indication: SKIN ULCER
     Dosage: 1000MG, UID/QD/IV DRIP
     Route: 041
     Dates: start: 20090218, end: 20090220

REACTIONS (41)
  - BLOOD CULTURE POSITIVE [None]
  - CANDIDIASIS [None]
  - CARDIAC ARREST [None]
  - CONDITION AGGRAVATED [None]
  - CULTURE POSITIVE [None]
  - CULTURE WOUND POSITIVE [None]
  - DEEP VEIN THROMBOSIS [None]
  - DEVICE RELATED SEPSIS [None]
  - DISEASE PROGRESSION [None]
  - DISSEMINATED INTRAVASCULAR COAGULATION [None]
  - DRUG ERUPTION [None]
  - DRUG INEFFECTIVE [None]
  - EROSIVE OESOPHAGITIS [None]
  - EYE INFECTION FUNGAL [None]
  - FIBRIN DEGRADATION PRODUCTS INCREASED [None]
  - FUNGAEMIA [None]
  - FUNGAL SEPSIS [None]
  - GASTRIC ULCER [None]
  - GENERAL PHYSICAL HEALTH DETERIORATION [None]
  - GENERALISED OEDEMA [None]
  - GENITAL ULCERATION [None]
  - HYPOALBUMINAEMIA [None]
  - LEUKOCYTOCLASTIC VASCULITIS [None]
  - MUSCLE DISORDER [None]
  - NO THERAPEUTIC RESPONSE [None]
  - OLIGURIA [None]
  - PLEURAL EFFUSION [None]
  - PULMONARY CAVITATION [None]
  - PYREXIA [None]
  - RESPIRATORY DISORDER [None]
  - RESPIRATORY FAILURE [None]
  - RESPIRATORY TRACT INFECTION FUNGAL [None]
  - RHEUMATOID ARTHRITIS [None]
  - SKIN NECROSIS [None]
  - SKIN ULCER [None]
  - SPOROTRICHOSIS [None]
  - SPUTUM CULTURE POSITIVE [None]
  - STAPHYLOCOCCAL BACTERAEMIA [None]
  - TENDON DISORDER [None]
  - THROMBIN-ANTITHROMBIN III COMPLEX INCREASED [None]
  - WOUND INFECTION [None]
